FAERS Safety Report 14329485 (Version 1)
Quarter: 2017Q4

REPORT INFORMATION
  Report Type: Spontaneous
  Country: US (occurrence: US)
  Receive Date: 20171227
  Receipt Date: 20171227
  Transmission Date: 20180321
  Serious: No
  Sender: FDA-Public Use
  Company Number: US-BAYER-2017-244801

PATIENT
  Sex: Female

DRUGS (7)
  1. ZEGERID OTC CAPSULES [Suspect]
     Active Substance: OMEPRAZOLE\SODIUM BICARBONATE
     Indication: GASTROINTESTINAL DISORDER
     Dosage: (1 DAILY)
     Route: 048
  2. METOPROLOL. [Concomitant]
     Active Substance: METOPROLOL
  3. POTASSIUM [Concomitant]
     Active Substance: POTASSIUM
  4. TOPROL XL [Concomitant]
     Active Substance: METOPROLOL SUCCINATE
  5. LYRICA [Concomitant]
     Active Substance: PREGABALIN
  6. BENICAR HCT [Concomitant]
     Active Substance: HYDROCHLOROTHIAZIDE\OLMESARTAN MEDOXOMIL
  7. CARNITINE [Concomitant]
     Active Substance: CARNITINE

REACTIONS (2)
  - Extra dose administered [Unknown]
  - Product use issue [Unknown]
